FAERS Safety Report 6248627-9 (Version None)
Quarter: 2009Q2

REPORT INFORMATION
  Report Type: 
  Country: None (occurrence: None)
  Receive Date: 20090624
  Receipt Date: 20090624
  Transmission Date: 20091009
  Serious: Yes (Life-Threatening)
  Sender: FDA-Public Use
  Company Number: None

PATIENT
  Age: 53 Year
  Sex: Female
  Weight: 81.3 kg

DRUGS (12)
  1. WARFARIN SODIUM [Suspect]
     Indication: ATRIAL FIBRILLATION
     Dosage: 4MG X 2D/ 8MG X 1D ALTERNATING
  2. METFORMIN HCL [Concomitant]
  3. SERTRALINE [Concomitant]
  4. DIGOXIN [Concomitant]
  5. LASIX [Concomitant]
  6. ALBUTEROL [Concomitant]
  7. SINGULAIR [Concomitant]
  8. COLACE [Concomitant]
  9. ADVAIR HFA [Concomitant]
  10. SOMATOSTATIN [Concomitant]
  11. PREDNISONE [Concomitant]
  12. GLIPIZIDE [Concomitant]

REACTIONS (6)
  - ABDOMINAL PAIN [None]
  - HAEMOGLOBIN DECREASED [None]
  - INTERNATIONAL NORMALISED RATIO INCREASED [None]
  - NAUSEA [None]
  - THERAPEUTIC AGENT TOXICITY [None]
  - VOMITING [None]
